FAERS Safety Report 25843460 (Version 1)
Quarter: 2025Q3

REPORT INFORMATION
  Report Type: Spontaneous
  Country: US (occurrence: US)
  Receive Date: 20250924
  Receipt Date: 20250924
  Transmission Date: 20251021
  Serious: No
  Sender: SANOFI AVENTIS
  Company Number: US-SA-2025SA285377

PATIENT
  Age: 75 Year

DRUGS (1)
  1. LOVENOX [Suspect]
     Active Substance: ENOXAPARIN SODIUM
     Indication: Endometrial neoplasm
     Dosage: 40 MG, QD
     Route: 058

REACTIONS (1)
  - Off label use [Unknown]
